FAERS Safety Report 6222437-0 (Version None)
Quarter: 2009Q2

REPORT INFORMATION
  Report Type: 
  Country: None (occurrence: None)
  Receive Date: 20090608
  Receipt Date: 20090531
  Transmission Date: 20091009
  Serious: Yes (Death)
  Sender: FDA-Public Use
  Company Number: JP-GENENTECH-283245

PATIENT
  Sex: Male

DRUGS (2)
  1. RITUXIMAB [Suspect]
     Indication: LYMPHOMA
  2. DEXAMETHASONE [Concomitant]
     Indication: LYMPHOMA

REACTIONS (1)
  - PULMONARY ARTERY STENOSIS [None]
